FAERS Safety Report 18479592 (Version 1)
Quarter: 2020Q4

REPORT INFORMATION
  Report Type: Spontaneous
  Country: US (occurrence: US)
  Receive Date: 20201106
  Receipt Date: 20201106
  Transmission Date: 20210114
  Serious: Yes (Disabling, Other)
  Sender: FDA-Public Use
  Company Number: None

PATIENT
  Age: 9 Year
  Sex: Female
  Weight: 36 kg

DRUGS (3)
  1. CULTURELLE KIDS PROBIOTICS [Concomitant]
  2. MIRALAX [Suspect]
     Active Substance: POLYETHYLENE GLYCOL 3350
     Indication: CONSTIPATION
  3. OLLY KIDS VITAMINS WITH PROBIOTICS [Concomitant]

REACTIONS (1)
  - Epilepsy [None]

NARRATIVE: CASE EVENT DATE: 20200825
